FAERS Safety Report 4279706-3 (Version None)
Quarter: 2004Q1

REPORT INFORMATION
  Report Type: 
  Country: None (occurrence: None)
  Receive Date: 20040123
  Receipt Date: 20040106
  Transmission Date: 20041129
  Serious: Yes (Other)
  Sender: FDA-Public Use
  Company Number: GBWYE521020JAN04

PATIENT
  Sex: Female

DRUGS (4)
  1. EFFEXOR [Suspect]
     Indication: DEPRESSION
     Dosage: 37.5 MG (FREQUENCY UNSPECIFIED)
     Route: 048
     Dates: start: 20031124, end: 20031215
  2. SENNA (SENNA) [Concomitant]
  3. LACTULOSE [Concomitant]
  4. CO-CODAMOL (CODEINE PHOSPHATE/PARACETAMOL) [Concomitant]

REACTIONS (1)
  - VASCULITIS [None]
